FAERS Safety Report 4831822-0 (Version None)
Quarter: 2005Q4

REPORT INFORMATION
  Report Type: 
  Country: None (occurrence: None)
  Receive Date: 20051118
  Receipt Date: 20051027
  Transmission Date: 20060501
  Serious: Yes (Hospitalization)
  Sender: FDA-Public Use
  Company Number: US-BRISTOL-MYERS SQUIBB COMPANY-13159298

PATIENT
  Age: 52 Year
  Sex: Female

DRUGS (11)
  1. CETUXIMAB [Suspect]
     Indication: SQUAMOUS CELL CARCINOMA
     Dosage: INITIATED ON 17-FEB-2005. 250 MG/M2 WEEKLY.
     Route: 042
     Dates: start: 20050330, end: 20050330
  2. CARBOPLATIN [Suspect]
     Indication: SQUAMOUS CELL CARCINOMA
     Dosage: INITIATED ON 17-FEB-2005. AUC 2.
     Route: 042
     Dates: start: 20050330, end: 20050330
  3. TAXOL [Suspect]
     Indication: SQUAMOUS CELL CARCINOMA
     Dosage: INITIATED ON 17-FEB-2005.
     Route: 042
     Dates: start: 20050330, end: 20050330
  4. CISPLATIN [Suspect]
     Indication: SQUAMOUS CELL CARCINOMA
     Dosage: CONCURRENT.  162 MG WAS ADMINISTERED ON 11-APR-05 AND 02-MAY-05.
     Dates: start: 20050502, end: 20050502
  5. RADIATION THERAPY [Suspect]
     Indication: SQUAMOUS CELL CARCINOMA
     Dosage: CONCURRENT RADIATION TX WAS GIVEN DAILY X 5 FOR 6 WEEKS.
  6. EVISTA [Concomitant]
     Indication: HORMONE REPLACEMENT THERAPY
     Dates: start: 20030715
  7. HYDROCODONE [Concomitant]
     Indication: PAIN
     Dosage: HOLD 07-JUN-2005.
     Dates: start: 20041101
  8. M.V.I. [Concomitant]
     Indication: MEDICAL DIET
     Dates: start: 20041101
  9. PEPCID AC [Concomitant]
     Indication: DYSPEPSIA
     Dates: start: 20050223
  10. PROPRANOLOL [Concomitant]
     Indication: TREMOR
     Dates: start: 19530715
  11. ZOLOFT [Concomitant]
     Indication: DEPRESSION
     Dates: start: 19980715

REACTIONS (3)
  - ASTHENIA [None]
  - DEHYDRATION [None]
  - RENAL FAILURE ACUTE [None]
